FAERS Safety Report 19058730 (Version 1)
Quarter: 2021Q1

REPORT INFORMATION
  Report Type: Spontaneous
  Country: CN (occurrence: CN)
  Receive Date: 20210325
  Receipt Date: 20210325
  Transmission Date: 20210420
  Serious: Yes (Other)
  Sender: FDA-Public Use
  Company Number: CN-BAYER-2021-110250

PATIENT
  Age: 25 Year
  Sex: Female

DRUGS (1)
  1. YASMIN [Suspect]
     Active Substance: DROSPIRENONE\ETHINYL ESTRADIOL
     Indication: CONTRACEPTION
     Dosage: 1 DF, QD
     Route: 048
     Dates: start: 202009, end: 20210310

REACTIONS (3)
  - Urinary tract infection [None]
  - Abnormal withdrawal bleeding [Not Recovered/Not Resolved]
  - Urethral haemorrhage [None]

NARRATIVE: CASE EVENT DATE: 20210315
